FAERS Safety Report 7988509-5 (Version None)
Quarter: 2011Q4

REPORT INFORMATION
  Report Type: 
  Country: None (occurrence: None)
  Receive Date: 20111216
  Receipt Date: 20111208
  Transmission Date: 20120403
  Serious: Yes (Hospitalization)
  Sender: FDA-Public Use
  Company Number: US-GILEAD-2011-0047925

PATIENT
  Age: 56 Year
  Sex: Female

DRUGS (11)
  1. NOVALGIN                           /06276704/ [Concomitant]
  2. RESLEX [Concomitant]
  3. EFAVIRENZ/EMTRICITABINE/TENOFOVIR DISOPROXIL FUMARATE [Suspect]
     Indication: HIV INFECTION
     Dosage: 1 DF, QD
     Route: 048
     Dates: start: 20101027
  4. AMITRIPTYLINE HCL [Concomitant]
  5. IBUPROFEN [Concomitant]
  6. MYDOCALM                           /02389701/ [Concomitant]
  7. ARCOXIA [Concomitant]
  8. RESTEX [Concomitant]
  9. ERGOCALCIFEROL [Concomitant]
  10. AMITRIPTYLINE HCL [Concomitant]
  11. LEVOTHYROXINE SODIUM [Concomitant]

REACTIONS (1)
  - DERMAL CYST [None]
